FAERS Safety Report 8590152 (Version 2)
Quarter: 2013Q2

REPORT INFORMATION
  Report Type: Spontaneous
  Country: US (occurrence: US)
  Receive Date: 20120601
  Receipt Date: 20130621
  Transmission Date: 20140414
  Serious: No
  Sender: FDA-Public Use
  Company Number: US-ASTRAZENECA-2012SE34568

PATIENT
  Sex: Female

DRUGS (11)
  1. NEXIUM [Suspect]
     Indication: DYSPEPSIA
     Dosage: 2 TIME, SOME TIME ONCE A DAY
     Route: 048
  2. FAMOTIDINE [Concomitant]
  3. LISINOPRIL [Concomitant]
  4. TRAZADONE [Concomitant]
     Route: 048
  5. ASPIRIN [Concomitant]
     Route: 048
     Dates: start: 20120914
  6. HYDROCODONE [Concomitant]
  7. MELOXICAM [Concomitant]
  8. LORATADINE [Concomitant]
  9. OMEPRAZOLE [Concomitant]
  10. FLUTICASONE [Concomitant]
     Dosage: 2 SPRAY DAILY
     Route: 045
     Dates: start: 20120914
  11. HYDROCHLOROTHIAZIDE [Concomitant]
     Route: 048
     Dates: start: 20120914

REACTIONS (3)
  - Osteoporosis [Unknown]
  - Multiple fractures [Unknown]
  - Osteogenesis imperfecta [Unknown]
